FAERS Safety Report 8900781 (Version 1)
Quarter: 2012Q4

REPORT INFORMATION
  Report Type: Report from Study
  Country: PH (occurrence: PH)
  Receive Date: 20121109
  Receipt Date: 20121109
  Transmission Date: 20130627
  Serious: Yes (Life-Threatening, Hospitalization, Other)
  Sender: FDA-Public Use
  Company Number: PH-SANOFI-AVENTIS-2012SA075488

PATIENT
  Age: 39 Year
  Sex: Female
  Weight: 52 kg

DRUGS (5)
  1. DOCETAXEL [Suspect]
     Indication: OVARIAN CANCER
     Route: 041
     Dates: start: 20100611, end: 20100611
  2. DOCETAXEL [Suspect]
     Indication: OVARIAN CANCER
     Route: 041
     Dates: start: 20100902, end: 20100902
  3. INVESTIGATIONAL DRUG [Suspect]
     Indication: OVARIAN CANCER
     Route: 065
     Dates: start: 20100611, end: 20100611
  4. CARBOPLATIN [Suspect]
     Indication: OVARIAN CANCER
     Dosage: frequecy is 1 in 3 day
     Route: 065
     Dates: start: 20100611, end: 20100611
  5. CARBOPLATIN [Suspect]
     Indication: OVARIAN CANCER
     Route: 065
     Dates: start: 20100902, end: 20100902

REACTIONS (7)
  - Hypokalaemia [Recovered/Resolved]
  - Hypomagnesaemia [Recovered/Resolved]
  - Hypocalcaemia [Recovered/Resolved]
  - Hyperbilirubinaemia [Recovered/Resolved]
  - Febrile neutropenia [Recovered/Resolved]
  - Thrombocytopenia [Recovered/Resolved]
  - Anaemia [Recovered/Resolved]
